FAERS Safety Report 16718071 (Version 1)
Quarter: 2019Q3

REPORT INFORMATION
  Report Type: Report from Study
  Country: CA (occurrence: CA)
  Receive Date: 20190819
  Receipt Date: 20190819
  Transmission Date: 20191005
  Serious: Yes (Hospitalization, Other)
  Sender: FDA-Public Use
  Company Number: CA-ELI_LILLY_AND_COMPANY-CA201812010275

PATIENT
  Age: 61 Year
  Sex: Male
  Weight: 77 kg

DRUGS (11)
  1. CETUXIMAB. [Suspect]
     Active Substance: CETUXIMAB
     Dosage: 250 MG/M2, WEEKLY
     Route: 042
     Dates: start: 20181214
  2. ENCORAFENIB [Concomitant]
     Active Substance: ENCORAFENIB
     Dosage: 300 UNK, UNK
     Route: 048
     Dates: start: 20181221
  3. ENCORAFENIB [Concomitant]
     Active Substance: ENCORAFENIB
     Indication: COLORECTAL CANCER
     Dosage: 300 MG, DAILY
     Route: 048
     Dates: start: 20181003, end: 20181128
  4. FLUOCINONIDE. [Concomitant]
     Active Substance: FLUOCINONIDE
     Indication: PRODUCT USED FOR UNKNOWN INDICATION
     Dosage: UNK
     Route: 065
     Dates: start: 20181017
  5. CETUXIMAB. [Suspect]
     Active Substance: CETUXIMAB
     Indication: COLORECTAL CANCER
     Dosage: 250 MG/M2, WEEKLY
     Route: 042
     Dates: start: 20181003, end: 20181128
  6. BETAMETHASONE VALERATE. [Concomitant]
     Active Substance: BETAMETHASONE VALERATE
     Indication: PRODUCT USED FOR UNKNOWN INDICATION
     Dosage: UNK
     Route: 065
     Dates: start: 20181007
  7. BINIMETINIB [Concomitant]
     Active Substance: BINIMETINIB
     Indication: COLORECTAL CANCER
     Dosage: 45 MG, BID
     Route: 048
     Dates: start: 20181003, end: 20181128
  8. BINIMETINIB [Concomitant]
     Active Substance: BINIMETINIB
     Dosage: 15 MG, BID
     Route: 048
     Dates: start: 20190116
  9. BINIMETINIB [Concomitant]
     Active Substance: BINIMETINIB
     Dosage: 30 MG, BID
     Route: 048
     Dates: start: 20181221
  10. ENCORAFENIB [Concomitant]
     Active Substance: ENCORAFENIB
     Dosage: 300 UNK, UNK
     Route: 048
     Dates: start: 20190109
  11. MINOCYCLINE [Concomitant]
     Active Substance: MINOCYCLINE HYDROCHLORIDE
     Indication: PRODUCT USED FOR UNKNOWN INDICATION
     Dosage: UNK
     Route: 065
     Dates: start: 20181017

REACTIONS (1)
  - Large intestinal ulcer [Recovered/Resolved]

NARRATIVE: CASE EVENT DATE: 20181202
